FAERS Safety Report 8001598-7 (Version None)
Quarter: 2011Q4

REPORT INFORMATION
  Report Type: 
  Country: None (occurrence: None)
  Receive Date: 20111222
  Receipt Date: 20111215
  Transmission Date: 20120403
  Serious: Yes (Hospitalization, Other)
  Sender: FDA-Public Use
  Company Number: US-JNJFOC-20110308428

PATIENT
  Sex: Female
  Weight: 52.16 kg

DRUGS (6)
  1. LEVAQUIN [Suspect]
     Indication: MULTIPLE ALLERGIES
     Route: 048
  2. IBANDRONATE SODIUM [Suspect]
     Indication: PRODUCT USED FOR UNKNOWN INDICATION
     Route: 065
  3. ASMANEX TWISTHALER [Suspect]
     Indication: PRODUCT USED FOR UNKNOWN INDICATION
     Route: 065
  4. LEVAQUIN [Suspect]
     Indication: BRONCHIAL DISORDER
     Route: 048
  5. OMNICEF [Suspect]
     Indication: CHRONIC OBSTRUCTIVE PULMONARY DISEASE
     Route: 065
  6. SYNTHROID [Concomitant]
     Indication: AUTOIMMUNE THYROIDITIS
     Route: 065

REACTIONS (3)
  - WEIGHT DECREASED [None]
  - MOOD SWINGS [None]
  - STEVENS-JOHNSON SYNDROME [None]
